FAERS Safety Report 5416452-4 (Version None)
Quarter: 2007Q3

REPORT INFORMATION
  Report Type: 
  Country: None (occurrence: None)
  Receive Date: 20070813
  Receipt Date: 20070813
  Transmission Date: 20080115
  Serious: Yes (Life-Threatening, Hospitalization, Other)
  Sender: FDA-Public Use
  Company Number: None

PATIENT
  Age: 36 Year
  Sex: Female
  Weight: 79.3795 kg

DRUGS (2)
  1. PROAIR HFA [Suspect]
     Indication: ASTHMA
     Dosage: 2 PUFFS Q. 4 H
     Route: 055
     Dates: start: 20070201, end: 20070801
  2. COMBIVENT [Suspect]
     Dosage: 2 PUFFS QID
     Route: 055
     Dates: start: 20070501, end: 20070801

REACTIONS (7)
  - ASTHMA [None]
  - CONTRAINDICATION TO MEDICAL TREATMENT [None]
  - DRUG HYPERSENSITIVITY [None]
  - DYSPNOEA [None]
  - OEDEMA [None]
  - PHARMACEUTICAL PRODUCT COMPLAINT [None]
  - SWELLING [None]
